FAERS Safety Report 14140006 (Version 1)
Quarter: 2017Q4

REPORT INFORMATION
  Report Type: Spontaneous
  Country: GB (occurrence: GB)
  Receive Date: 20171030
  Receipt Date: 20171030
  Transmission Date: 20180321
  Serious: Yes (Disabling)
  Sender: FDA-Public Use
  Company Number: GB-ACCORD-060326

PATIENT
  Age: 80 Year
  Sex: Female
  Weight: 84 kg

DRUGS (12)
  1. COAL TAR. [Concomitant]
     Active Substance: COAL TAR
     Dates: start: 20161107
  2. BUMETANIDE. [Concomitant]
     Active Substance: BUMETANIDE
     Dosage: MORNING
     Dates: start: 20170626, end: 20170728
  3. OILATUM [Concomitant]
     Dosage: APPLY
     Dates: start: 20161107
  4. AMLODIPINE [Concomitant]
     Active Substance: AMLODIPINE BESYLATE
     Dates: start: 20170904
  5. ATORVASTATIN [Concomitant]
     Active Substance: ATORVASTATIN
     Dates: start: 20161107
  6. LISINOPRIL. [Suspect]
     Active Substance: LISINOPRIL
     Indication: PRODUCT USED FOR UNKNOWN INDICATION
  7. CO-DYDRAMOL [Concomitant]
     Active Substance: ACETAMINOPHEN\DIHYDROCODEINE
     Dosage: TAKE 1 OR 2 4 TIMES/DAY WHEN REQUIRED
     Dates: start: 20170228, end: 20170807
  8. LEVOTHYROXINE. [Concomitant]
     Active Substance: LEVOTHYROXINE
     Dosage: MORNING
     Dates: start: 20161107
  9. MACROGOL/MACROGOL STEARATE [Concomitant]
     Dates: start: 20170427
  10. ZOMORPH [Concomitant]
     Active Substance: MORPHINE SULFATE
     Dates: start: 20170516, end: 20170807
  11. BETAMETHASONE. [Concomitant]
     Active Substance: BETAMETHASONE
     Dosage: APPLY TWICE DAILY
     Dates: start: 20161107
  12. METFORMIN [Concomitant]
     Active Substance: METFORMIN HYDROCHLORIDE
     Dates: start: 20161107

REACTIONS (2)
  - Sciatica [Recovered/Resolved]
  - Hyponatraemia [Recovered/Resolved]

NARRATIVE: CASE EVENT DATE: 20170201
